FAERS Safety Report 23181970 (Version 1)
Quarter: 2023Q4

REPORT INFORMATION
  Report Type: Spontaneous
  Country: US (occurrence: None)
  Receive Date: 20231113
  Receipt Date: 20231113
  Transmission Date: 20240110
  Serious: Yes (Death)
  Sender: FDA-Public Use
  Company Number: None

PATIENT
  Age: 80 Year
  Sex: Female

DRUGS (1)
  1. PROMACTA [Suspect]
     Active Substance: ELTROMBOPAG OLAMINE
     Indication: Thrombocytopenia
     Dosage: 12.5MG QD ORAL
     Route: 048
     Dates: start: 20220624, end: 20230803

REACTIONS (3)
  - Respiratory failure [None]
  - Acute respiratory distress syndrome [None]
  - Aspiration [None]

NARRATIVE: CASE EVENT DATE: 20230803
